FAERS Safety Report 4570553-1 (Version None)
Quarter: 2005Q1

REPORT INFORMATION
  Report Type: 
  Country: None (occurrence: None)
  Receive Date: 20050202
  Receipt Date: 20050202
  Transmission Date: 20050727
  Serious: Yes (Other)
  Sender: FDA-Public Use
  Company Number: None

PATIENT
  Sex: Female
  Weight: 83.9154 kg

DRUGS (3)
  1. ADVAIR DISKUS 250/50 [Suspect]
     Indication: ASTHMA
     Dosage: 250/50   BID   RESPIRATOR
     Route: 055
     Dates: start: 20040716, end: 20050201
  2. SINGULAIR [Concomitant]
  3. COMBIVENT [Concomitant]

REACTIONS (8)
  - COUGH [None]
  - DRUG INEFFECTIVE [None]
  - FATIGUE [None]
  - MENSTRUAL DISORDER [None]
  - RESPIRATORY TRACT INFECTION [None]
  - SINUSITIS [None]
  - UPPER RESPIRATORY TRACT INFECTION [None]
  - WHEEZING [None]
